FAERS Safety Report 9755294 (Version 2)
Quarter: 2013Q4

REPORT INFORMATION
  Report Type: Spontaneous
  Country: GB (occurrence: GB)
  Receive Date: 20131213
  Receipt Date: 20131213
  Transmission Date: 20140711
  Serious: Yes (Death, Other)
  Sender: FDA-Public Use
  Company Number: GB-OTSUKA-EU-2013-10211

PATIENT
  Age: 68 Year
  Sex: Female

DRUGS (13)
  1. SAMSCA [Suspect]
     Indication: INAPPROPRIATE ANTIDIURETIC HORMONE SECRETION
     Dosage: 15 MG MILLIGRAM(S), QD
     Dates: start: 20130418, end: 20130419
  2. SAMSCA [Suspect]
     Dosage: 3.75 MG MILLIGRAM(S), QD
     Route: 048
     Dates: start: 20130626, end: 20130628
  3. SAMSCA [Suspect]
     Dosage: 7.5 MG MILLIGRAM(S), QD
     Route: 048
     Dates: start: 20130629, end: 20130705
  4. SAMSCA [Suspect]
     Dosage: 15 MG MILLIGRAM(S), QD
     Dates: start: 20130706, end: 20130709
  5. SAMSCA [Suspect]
     Dosage: 30 MG MILLIGRAM(S), QD
     Dates: start: 20130710, end: 20130711
  6. SAMSCA [Suspect]
     Dosage: 60 MG MILLIGRAM(S), QD
     Dates: start: 20130720, end: 20130819
  7. SAMSCA [Suspect]
     Dosage: 30 MG MILLIGRAM(S), QD
     Dates: start: 20130820, end: 20130824
  8. SAMSCA [Suspect]
     Dosage: 15 MG MILLIGRAM(S), QD
     Dates: start: 20130826, end: 20130828
  9. GLICLAZIDE [Concomitant]
     Indication: TYPE 2 DIABETES MELLITUS
     Dosage: UNK, UNKNOWN
     Route: 065
  10. AMLODIPINE [Concomitant]
     Indication: HYPERTENSION
     Dosage: UNK, UNKNOWN
     Route: 065
  11. ENALAPRIL [Concomitant]
     Indication: HYPERTENSION
     Dosage: UNK, UNKNOWN
     Route: 065
  12. DOXAZOSIN [Concomitant]
     Indication: HYPERTENSION
     Dosage: UNK, UNKNOWN
     Route: 065
  13. OMEPRAZOLE [Concomitant]
     Dosage: 20 MG MILLIGRAM(S), DAILY DOSE
     Route: 065

REACTIONS (5)
  - Death [Fatal]
  - Rapid correction of hyponatraemia [Unknown]
  - Rapid correction of hyponatraemia [Unknown]
  - Wrong technique in drug usage process [Unknown]
  - Drug ineffective [Unknown]
